FAERS Safety Report 10408558 (Version 2)
Quarter: 2014Q1

REPORT INFORMATION
  Report Type: Spontaneous
  Country: US (occurrence: None)
  Receive Date: 20130225
  Receipt Date: 20130909
  Transmission Date: 20141002
  Serious: Yes (Hospitalization)
  Sender: FDA-Public Use
  Company Number: 369780N

PATIENT
  Age: 59 Year
  Sex: Male
  Weight: 104 kg

DRUGS (4)
  1. VICTOZA (LIRAGLUTIDE) SOLUTION FOR INJECTION, 6MG/ML [Suspect]
     Indication: TYPE 2 DIABETES MELLITUS
     Route: 058
     Dates: start: 20121217, end: 20130108
  2. GLYBURIDE (GLIBENCLAMIDE) [Concomitant]
  3. METFORMIN [Concomitant]
  4. ACARBOSE [Concomitant]

REACTIONS (2)
  - Pancreatitis [None]
  - Pancreatitis acute [None]
